FAERS Safety Report 12339874 (Version 1)
Quarter: 2016Q2

REPORT INFORMATION
  Report Type: Spontaneous
  Country: US (occurrence: US)
  Receive Date: 20160506
  Receipt Date: 20160506
  Transmission Date: 20160815
  Serious: Yes (Other)
  Sender: FDA-Public Use
  Company Number: US-BEH-2016062052

PATIENT
  Age: 56 Year
  Sex: Male
  Weight: 83 kg

DRUGS (23)
  1. PREDNISONE. [Concomitant]
     Active Substance: PREDNISONE
  2. PANTOPRAZOLE [Concomitant]
     Active Substance: PANTOPRAZOLE SODIUM
  3. QVAR [Concomitant]
     Active Substance: BECLOMETHASONE DIPROPIONATE
  4. CETIRIZINE [Concomitant]
     Active Substance: CETIRIZINE HYDROCHLORIDE
  5. ACCOLATE [Concomitant]
     Active Substance: ZAFIRLUKAST
  6. ZEMAIRA [Suspect]
     Active Substance: .ALPHA.1-PROTEINASE INHIBITOR HUMAN
     Indication: ALPHA-1 ANTI-TRYPSIN DEFICIENCY
     Route: 042
     Dates: start: 20110608
  7. LIADA [Concomitant]
  8. TRIAM-HCTZ [Concomitant]
  9. HUMIRA [Concomitant]
     Active Substance: ADALIMUMAB
  10. SODIUM CHLORIDE. [Concomitant]
     Active Substance: SODIUM CHLORIDE
  11. EPIPEN [Concomitant]
     Active Substance: EPINEPHRINE
  12. ANDROGEL [Concomitant]
     Active Substance: TESTOSTERONE
  13. PROAIR HFA [Concomitant]
     Active Substance: ALBUTEROL SULFATE
  14. MAGNESIUM [Concomitant]
     Active Substance: MAGNESIUM
  15. SYMBICORT [Concomitant]
     Active Substance: BUDESONIDE\FORMOTEROL FUMARATE DIHYDRATE
  16. LMX [Concomitant]
     Active Substance: LIDOCAINE
  17. CALCIUM [Concomitant]
     Active Substance: CALCIUM
  18. AMLODIPINE [Concomitant]
     Active Substance: AMLODIPINE BESYLATE
  19. METRONIDAZOLE. [Concomitant]
     Active Substance: METRONIDAZOLE
  20. VITAMIN D [Concomitant]
     Active Substance: CHOLECALCIFEROL
  21. CLOTRIMAZOLE. [Concomitant]
     Active Substance: CLOTRIMAZOLE
  22. DIPHENHYDRAMINE. [Concomitant]
     Active Substance: DIPHENHYDRAMINE
  23. ALBUTEROL. [Concomitant]
     Active Substance: ALBUTEROL

REACTIONS (1)
  - Lung infection [Unknown]

NARRATIVE: CASE EVENT DATE: 20160419
